FAERS Safety Report 20664831 (Version 1)
Quarter: 2022Q2

REPORT INFORMATION
  Report Type: Spontaneous
  Country: US (occurrence: US)
  Receive Date: 20220401
  Receipt Date: 20220401
  Transmission Date: 20220721
  Serious: Yes (Other)
  Sender: FDA-Public Use
  Company Number: US-TEVA-2022-US-2021609

PATIENT
  Age: 57 Year
  Sex: Female

DRUGS (2)
  1. TRAMADOL HYDROCHLORIDE [Suspect]
     Active Substance: TRAMADOL HYDROCHLORIDE
     Indication: Pain
     Dosage: ONE 50 MG TABLET UP TO FOUR TIMES PER DAY
  2. CHLORZOXAZONE [Suspect]
     Active Substance: CHLORZOXAZONE
     Indication: Muscle spasms
     Dosage: ONE 500 MG TABLET UP TO FOUR TIMES PER DAY

REACTIONS (7)
  - Anaphylactic reaction [Recovered/Resolved]
  - Neck surgery [Recovered/Resolved]
  - Neck surgery [Recovered/Resolved]
  - Food allergy [Not Recovered/Not Resolved]
  - Milk allergy [Not Recovered/Not Resolved]
  - Pruritus [Unknown]
  - Rash [Recovered/Resolved]

NARRATIVE: CASE EVENT DATE: 20160630
